FAERS Safety Report 9805338 (Version 1)
Quarter: 2014Q1

REPORT INFORMATION
  Report Type: Spontaneous
  Country: US (occurrence: None)
  Receive Date: 20140108
  Receipt Date: 20140108
  Transmission Date: 20141002
  Serious: No
  Sender: FDA-Public Use
  Company Number: None

PATIENT
  Age: 75 Year
  Sex: Female
  Weight: 54.43 kg

DRUGS (4)
  1. LEVOFLOXACIN [Suspect]
     Indication: COUGH
     Dosage: 1/DAY FOR 5 DAYS
     Route: 048
     Dates: start: 20131205, end: 20131207
  2. LEVOFLOXACIN [Suspect]
     Indication: RALES
     Dosage: 1/DAY FOR 5 DAYS
     Route: 048
     Dates: start: 20131205, end: 20131207
  3. CELEBREX [Concomitant]
  4. ACIDOPHILUS [Concomitant]

REACTIONS (7)
  - Dysstasia [None]
  - Abasia [None]
  - Pain in extremity [None]
  - Oedema peripheral [None]
  - Skin discolouration [None]
  - Arthralgia [None]
  - Joint swelling [None]
